FAERS Safety Report 19533516 (Version 1)
Quarter: 2021Q3

REPORT INFORMATION
  Report Type: Spontaneous
  Country: FR (occurrence: FR)
  Receive Date: 20210713
  Receipt Date: 20210713
  Transmission Date: 20211014
  Serious: Yes (Death, Other)
  Sender: FDA-Public Use
  Company Number: FR-MYLANLABS-2021M1040553

PATIENT
  Sex: Male
  Weight: 5.8 kg

DRUGS (3)
  1. TEMOZOLOMIDE. [Suspect]
     Active Substance: TEMOZOLOMIDE
     Indication: NEUROBLASTOMA
     Dosage: UNK
     Route: 065
  2. QARZIBA [Suspect]
     Active Substance: DINUTUXIMAB BETA
     Indication: NEUROBLASTOMA
     Dosage: 2 MILLIGRAM, QD, DAY 1 TO DAY 7
     Route: 065
     Dates: start: 2020
  3. TOPOTECAN [Suspect]
     Active Substance: TOPOTECAN HYDROCHLORIDE
     Indication: NEUROBLASTOMA
     Dosage: UNK
     Route: 065

REACTIONS (5)
  - Hypersensitivity [Unknown]
  - Off label use [Unknown]
  - Pyrexia [Unknown]
  - Abdominal pain [Unknown]
  - Disease progression [Fatal]

NARRATIVE: CASE EVENT DATE: 2020
